FAERS Safety Report 8897311 (Version 1)
Quarter: 2012Q4

REPORT INFORMATION
  Report Type: 
  Country: US (occurrence: US)
  Receive Date: 20121108
  Receipt Date: 20121108
  Transmission Date: 20130627
  Serious: No
  Sender: FDA-Public Use
  Company Number: US-AMGEN-USASP2012027111

PATIENT
  Age: 75 Year
  Sex: Female

DRUGS (14)
  1. ENBREL [Suspect]
     Indication: PRODUCT USED FOR UNKNOWN INDICATION
     Dosage: 50 mg, qwk
     Route: 058
  2. METOPROLOL TARTRATE [Concomitant]
     Dosage: 25 mg, UNK
  3. SIMVASTATIN [Concomitant]
     Dosage: 5 mg, UNK
  4. FOLIC ACID [Concomitant]
     Dosage: UNK
  5. MULTIVITAMIN                       /00097801/ [Concomitant]
     Dosage: UNK
  6. NASONEX [Concomitant]
     Dosage: 50 mug, UNK
  7. CALCIUM 500+D [Concomitant]
     Dosage: UNK
  8. VITAMIN D3 [Concomitant]
     Dosage: UNK
  9. SPIRIVA HANDIHALER [Concomitant]
     Dosage: UNK
  10. LEFLUNOMIDE [Concomitant]
     Dosage: 10 mg, UNK
  11. PANTOPRAZOLE [Concomitant]
     Dosage: 20 mg, UNK
  12. MUCINEX [Concomitant]
     Dosage: UNK
  13. FUROSEMIDE [Concomitant]
     Dosage: 20 mg, UNK
  14. ZYRTEC [Concomitant]
     Dosage: 5 mg, UNK

REACTIONS (1)
  - Oedema peripheral [Unknown]
